FAERS Safety Report 5092842-7 (Version None)
Quarter: 2006Q3

REPORT INFORMATION
  Report Type: 
  Country: None (occurrence: None)
  Receive Date: 20060727
  Receipt Date: 20060612
  Transmission Date: 20061208
  Serious: Yes (Disabling, Other)
  Sender: FDA-Public Use
  Company Number: 2006073135

PATIENT
  Age: 75 Year
  Sex: Male
  Weight: 80.7403 kg

DRUGS (8)
  1. LYRICA [Suspect]
     Indication: DIABETIC NEUROPATHY
     Dosage: 150 MG (50 MG,3 IN 1 D),ORAL
     Route: 048
     Dates: start: 20060524, end: 20060603
  2. LIPITOR [Concomitant]
  3. ATENOLOL [Concomitant]
  4. CAPTOPRIL [Concomitant]
  5. MONTELUKAST SODIUM (MONTELUKAST SODIUM) [Concomitant]
  6. ASPIRIN [Concomitant]
  7. INSULIN (INSULIN) [Concomitant]
  8. IBUPROFEN [Concomitant]

REACTIONS (5)
  - DRY MOUTH [None]
  - MUSCULAR WEAKNESS [None]
  - MYALGIA [None]
  - TREMOR [None]
  - VISUAL DISTURBANCE [None]
